FAERS Safety Report 10733298 (Version 3)
Quarter: 2015Q2

REPORT INFORMATION
  Report Type: Spontaneous
  Country: US (occurrence: US)
  Receive Date: 20150123
  Receipt Date: 20150624
  Transmission Date: 20150821
  Serious: Yes (Hospitalization)
  Sender: FDA-Public Use
  Company Number: US-BAYER-2015-009128

PATIENT
  Age: 32 Year
  Sex: Female
  Weight: 72.56 kg

DRUGS (1)
  1. MIRENA [Suspect]
     Active Substance: LEVONORGESTREL
     Indication: CONTRACEPTION
     Dosage: 20 MCG/24HR, CONT
     Route: 015
     Dates: start: 201103, end: 20110811

REACTIONS (15)
  - Depression [None]
  - Headache [None]
  - Injury [None]
  - Tooth fracture [None]
  - Appetite disorder [None]
  - Anxiety [None]
  - Abdominal pain [None]
  - Dyspareunia [None]
  - Uterine perforation [None]
  - Emotional distress [None]
  - Alopecia [None]
  - Pain [None]
  - Device issue [None]
  - Off label use of device [None]
  - Bowel movement irregularity [None]

NARRATIVE: CASE EVENT DATE: 2011
